FAERS Safety Report 18410020 (Version 1)
Quarter: 2020Q4

REPORT INFORMATION
  Report Type: Spontaneous
  Country: US (occurrence: US)
  Receive Date: 20201021
  Receipt Date: 20201021
  Transmission Date: 20210114
  Serious: Yes (Life-Threatening, Hospitalization, Other)
  Sender: FDA-Public Use
  Company Number: US-ELI_LILLY_AND_COMPANY-US88051067A

PATIENT
  Age: 13 Year
  Sex: Male
  Weight: 72 kg

DRUGS (2)
  1. PROZAC [Suspect]
     Active Substance: FLUOXETINE HYDROCHLORIDE
     Dosage: 20 MG, DAILY
     Route: 048
     Dates: start: 198804
  2. PROZAC [Suspect]
     Active Substance: FLUOXETINE HYDROCHLORIDE
     Dosage: 40 MG
     Route: 048

REACTIONS (15)
  - Suicide attempt [Recovered/Resolved]
  - Hallucination [Unknown]
  - Sinus tachycardia [Recovered/Resolved]
  - Electrocardiogram ST segment depression [Recovered/Resolved]
  - Headache [Recovered/Resolved]
  - Somnolence [Recovered/Resolved]
  - Suicidal ideation [Unknown]
  - Generalised tonic-clonic seizure [Recovered/Resolved]
  - Dizziness [Recovered/Resolved]
  - Intentional overdose [Recovered/Resolved]
  - Vision blurred [Recovered/Resolved]
  - Sedation [Unknown]
  - Delusion [Unknown]
  - Abdominal discomfort [Recovered/Resolved]
  - Depression [Unknown]

NARRATIVE: CASE EVENT DATE: 19880522
